FAERS Safety Report 15311245 (Version 3)
Quarter: 2019Q1

REPORT INFORMATION
  Report Type: Report from Study
  Country: BE (occurrence: BE)
  Receive Date: 20180823
  Receipt Date: 20190126
  Transmission Date: 20190417
  Serious: Yes (Hospitalization, Other)
  Sender: FDA-Public Use
  Company Number: BE-TAKEDA-2018TUS025164

PATIENT

DRUGS (17)
  1. ASAFLOW [Concomitant]
     Active Substance: ASPIRIN
     Dosage: UNK
  2. PLASMALYTE GLUCOS [Concomitant]
     Dosage: UNK
  3. TRADONAL [Concomitant]
     Active Substance: TRAMADOL HYDROCHLORIDE
     Dosage: UNK
  4. LITICAN                            /00690801/ [Concomitant]
     Active Substance: ALIZAPRIDE
     Dosage: UNK
  5. MOTILIUM [Concomitant]
     Active Substance: DOMPERIDONE
     Dosage: UNK
  6. ZYLORIC [Concomitant]
     Active Substance: ALLOPURINOL
     Indication: GOUT
     Dosage: 300 MILLIGRAM
     Route: 048
  7. ZOLPIDEM [Concomitant]
     Active Substance: ZOLPIDEM\ZOLPIDEM TARTRATE
     Indication: INSOMNIA
     Dosage: 10 MILLIGRAM
  8. PANTOMED                           /00178901/ [Concomitant]
     Active Substance: DEXPANTHENOL
     Dosage: UNK
  9. ALDACTAZINE [Concomitant]
     Active Substance: ALTHIAZIDE\SPIRONOLACTONE
     Indication: CARDIAC FAILURE
     Dosage: UNK
     Dates: start: 20171214
  10. STILNOCT [Concomitant]
     Active Substance: ZOLPIDEM TARTRATE
     Dosage: UNK
  11. CEFAZOLINE [Concomitant]
     Active Substance: CEFAZOLIN SODIUM
     Dosage: UNK
  12. VEDOLIZUMAB [Suspect]
     Active Substance: VEDOLIZUMAB
     Indication: CROHN^S DISEASE
     Dosage: UNK
     Route: 042
     Dates: start: 20160916
  13. IMODIUM [Concomitant]
     Active Substance: LOPERAMIDE HYDROCHLORIDE
     Indication: DIARRHOEA
     Dosage: UNK
     Route: 048
  14. TAMSULOSINE [Concomitant]
     Active Substance: TAMSULOSIN HYDROCHLORIDE
     Indication: BLOOD POTASSIUM
     Dosage: 0.4 MILLIGRAM
     Route: 048
  15. FRAXIPARINE [Concomitant]
     Active Substance: NADROPARIN CALCIUM
     Dosage: UNK
  16. PARACETAMOL FRESENIUS [Concomitant]
     Dosage: UNK
  17. DAFALGAN [Concomitant]
     Active Substance: ACETAMINOPHEN
     Dosage: UNK

REACTIONS (4)
  - Small intestinal obstruction [Recovered/Resolved]
  - Renal cell carcinoma [Recovered/Resolved]
  - Small intestinal obstruction [Recovered/Resolved]
  - Decreased appetite [Recovered/Resolved]

NARRATIVE: CASE EVENT DATE: 20180415
